FAERS Safety Report 7158950-1 (Version None)
Quarter: 2010Q4

REPORT INFORMATION
  Report Type: 
  Country: None (occurrence: None)
  Receive Date: 20101130
  Receipt Date: 20101116
  Transmission Date: 20110411
  Serious: Yes (Other)
  Sender: FDA-Public Use
  Company Number: 2010PL000168

PATIENT
  Age: 66 Year
  Sex: Male

DRUGS (4)
  1. PROLEUKIN [Suspect]
     Indication: PRODUCT USED FOR UNKNOWN INDICATION
     Dates: start: 20020101, end: 20060101
  2. SAQUINAVIR (SAQUINAVIR) [Suspect]
     Indication: HIV INFECTION
     Dates: start: 20020101
  3. LAMIVUDINE [Suspect]
     Indication: HIV INFECTION
     Dates: start: 20020101
  4. STAVUDINE [Suspect]
     Indication: HIV INFECTION
     Dates: start: 20020101

REACTIONS (2)
  - METASTASES TO LYMPH NODES [None]
  - NEUROENDOCRINE CARCINOMA OF THE SKIN [None]
